FAERS Safety Report 4770194-7 (Version None)
Quarter: 2005Q3

REPORT INFORMATION
  Report Type: 
  Country: None (occurrence: None)
  Receive Date: 20050915
  Receipt Date: 20050907
  Transmission Date: 20060218
  Serious: Yes (Death)
  Sender: FDA-Public Use
  Company Number: US-JNJFOC-20050902735

PATIENT
  Sex: Female

DRUGS (5)
  1. TOPAMAX [Suspect]
     Indication: DRUG USE FOR UNKNOWN INDICATION
  2. ACETAMINOPHEN [Suspect]
     Indication: HEADACHE
  3. CELEXA [Suspect]
     Indication: TRICHOTILLOMANIA
  4. TRAZODONE HCL [Suspect]
     Indication: SLEEP DISORDER
  5. NALTREXONE [Concomitant]

REACTIONS (2)
  - BLOOD BICARBONATE DECREASED [None]
  - DRUG TOXICITY [None]
